FAERS Safety Report 11478692 (Version 2)
Quarter: 2016Q4

REPORT INFORMATION
  Report Type: Spontaneous
  Country: US (occurrence: US)
  Receive Date: 20150909
  Receipt Date: 20161123
  Transmission Date: 20170206
  Serious: No
  Sender: FDA-Public Use
  Company Number: US-JAZZ-2014-US-013588

PATIENT
  Sex: Female

DRUGS (7)
  1. NUVIGIL [Concomitant]
     Active Substance: ARMODAFINIL
     Indication: SLEEP DISORDER
     Dosage: UNK
  2. CABERGOLINE. [Concomitant]
     Active Substance: CABERGOLINE
     Indication: HYPERPROLACTINAEMIA
     Dosage: UNK
  3. XYREM [Suspect]
     Active Substance: SODIUM OXYBATE
     Indication: NARCOLEPSY
     Dosage: 2.25 G, BID
     Route: 048
     Dates: start: 201208, end: 2012
  4. XYREM [Suspect]
     Active Substance: SODIUM OXYBATE
     Indication: CATAPLEXY
     Dosage: DOSE ADJUSTMENTS
  5. XYREM [Suspect]
     Active Substance: SODIUM OXYBATE
     Dosage: 7 G, FIRST DOSE
     Route: 048
     Dates: start: 201406, end: 201502
  6. XYREM [Suspect]
     Active Substance: SODIUM OXYBATE
     Dosage: 4.5 G, SECOND DOSE
     Route: 048
     Dates: start: 201406, end: 201502
  7. XYREM [Suspect]
     Active Substance: SODIUM OXYBATE
     Dosage: 4.5 G, BID
     Route: 048
     Dates: start: 201502

REACTIONS (4)
  - Therapeutic response decreased [Not Recovered/Not Resolved]
  - Middle insomnia [Not Recovered/Not Resolved]
  - Nocturia [Not Recovered/Not Resolved]
  - Abnormal dreams [Not Recovered/Not Resolved]

NARRATIVE: CASE EVENT DATE: 2014
